FAERS Safety Report 22300712 (Version 1)
Quarter: 2023Q2

REPORT INFORMATION
  Report Type: Spontaneous
  Country: US (occurrence: US)
  Receive Date: 20230509
  Receipt Date: 20230509
  Transmission Date: 20230722
  Serious: No
  Sender: FDA-Public Use
  Company Number: US-SA-SAC20230502000108

PATIENT
  Sex: Female

DRUGS (8)
  1. DUPIXENT [Suspect]
     Active Substance: DUPILUMAB
     Indication: Dermatitis atopic
     Dosage: 300 MG, QOW
     Route: 058
     Dates: start: 20220714
  2. CLOBETASOL [Concomitant]
     Active Substance: CLOBETASOL
     Dosage: UNK
  3. TRIAMCINOLONE [Concomitant]
     Active Substance: TRIAMCINOLONE
  4. ESTRADIOL [Concomitant]
     Active Substance: ESTRADIOL
  5. ELIDEL [Concomitant]
     Active Substance: PIMECROLIMUS
  6. PREDNISONE [Concomitant]
     Active Substance: PREDNISONE
  7. ENALPRIL [Concomitant]
  8. ENALPRIL [Concomitant]

REACTIONS (1)
  - Dermatitis atopic [Unknown]
